FAERS Safety Report 5965815-7 (Version None)
Quarter: 2008Q4

REPORT INFORMATION
  Report Type: 
  Country: None (occurrence: None)
  Receive Date: 20081121
  Receipt Date: 20081113
  Transmission Date: 20090506
  Serious: Yes (Other)
  Sender: FDA-Public Use
  Company Number: ADE2008-0374

PATIENT
  Age: 36 Week
  Sex: Female

DRUGS (1)
  1. PAROXETINE HCL [Suspect]
     Dosage: 20 MG X 1 TRANSPLACENT
     Route: 064

REACTIONS (2)
  - ELECTROCARDIOGRAM QT PROLONGED [None]
  - MATERNAL DRUGS AFFECTING FOETUS [None]
